FAERS Safety Report 5590353-3 (Version None)
Quarter: 2008Q1

REPORT INFORMATION
  Report Type: 
  Country: None (occurrence: None)
  Receive Date: 20080109
  Receipt Date: 20080108
  Transmission Date: 20080703
  Serious: Yes (Death, Other)
  Sender: FDA-Public Use
  Company Number: 011250

PATIENT
  Sex: Female

DRUGS (3)
  1. ESTRADIOL [Suspect]
     Dosage: ORAL
     Route: 048
     Dates: start: 19850101, end: 19990101
  2. PREMARIN [Suspect]
     Dosage: ORAL
     Route: 048
     Dates: start: 19850101, end: 19990101
  3. ESTRACE [Suspect]
     Dosage: ORAL
     Route: 048
     Dates: start: 19850101, end: 19990101

REACTIONS (1)
  - BREAST CANCER METASTATIC [None]
